FAERS Safety Report 20387685 (Version 1)
Quarter: 2022Q1

REPORT INFORMATION
  Report Type: Spontaneous
  Country: US (occurrence: US)
  Receive Date: 20220127
  Receipt Date: 20220127
  Transmission Date: 20220424
  Serious: No
  Sender: FDA-Public Use
  Company Number: US-ALLERGAN-2137185US

PATIENT
  Sex: Female

DRUGS (4)
  1. BOTOX [Suspect]
     Active Substance: ONABOTULINUMTOXINA
     Indication: Temporomandibular joint syndrome
     Dosage: UNK UNK, SINGLE
     Dates: start: 20210921, end: 20210921
  2. BOTOX [Suspect]
     Active Substance: ONABOTULINUMTOXINA
     Indication: Migraine
  3. POLYLACTIDE, L- [Suspect]
     Active Substance: POLYLACTIDE, L-
     Indication: Temporomandibular joint syndrome
     Dosage: UNK
     Dates: start: 20210921, end: 20210921
  4. VITAMINS NOS [Concomitant]
     Active Substance: VITAMINS

REACTIONS (12)
  - Panic attack [Recovered/Resolved]
  - Respiratory tract infection [Recovered/Resolved with Sequelae]
  - Feeling abnormal [Not Recovered/Not Resolved]
  - Sinusitis [Not Recovered/Not Resolved]
  - Head discomfort [Not Recovered/Not Resolved]
  - Cystitis [Recovered/Resolved]
  - Pollakiuria [Recovered/Resolved]
  - Bladder disorder [Recovered/Resolved]
  - Off label use [Unknown]
  - Dysphagia [Not Recovered/Not Resolved]
  - Dizziness [Not Recovered/Not Resolved]
  - Dysphonia [Not Recovered/Not Resolved]
